FAERS Safety Report 25674700 (Version 1)
Quarter: 2025Q3

REPORT INFORMATION
  Report Type: Report from Study
  Country: US (occurrence: US)
  Receive Date: 20250813
  Receipt Date: 20250813
  Transmission Date: 20251021
  Serious: Yes (Death, Other)
  Sender: RANBAXY
  Company Number: US-SUN PHARMACEUTICAL INDUSTRIES LTD-2025R1-521901

PATIENT
  Age: 17 Year
  Sex: Male

DRUGS (4)
  1. MORPHINE [Interacting]
     Active Substance: MORPHINE
     Indication: Product used for unknown indication
     Route: 065
  2. OXYCODONE [Interacting]
     Active Substance: OXYCODONE
     Indication: Product used for unknown indication
     Route: 065
  3. CAFFEINE [Interacting]
     Active Substance: CAFFEINE
     Indication: Product used for unknown indication
     Route: 065
  4. OPANA [Interacting]
     Active Substance: OXYMORPHONE HYDROCHLORIDE
     Indication: Product used for unknown indication
     Route: 065

REACTIONS (8)
  - Back pain [Fatal]
  - Vomiting [Fatal]
  - Drug interaction [Fatal]
  - Brain oedema [Fatal]
  - Drug abuse [Fatal]
  - Overdose [Fatal]
  - Pulmonary oedema [Fatal]
  - Toxicity to various agents [Fatal]
